FAERS Safety Report 5823189-6 (Version None)
Quarter: 2008Q3

REPORT INFORMATION
  Report Type: 
  Country: None (occurrence: None)
  Receive Date: 20080725
  Receipt Date: 20080717
  Transmission Date: 20090109
  Serious: Yes (Other)
  Sender: FDA-Public Use
  Company Number: PHBS2008IN05175

PATIENT
  Age: 20 Year
  Sex: Female

DRUGS (2)
  1. DICLOFENAC SODIUM [Suspect]
  2. SULFASALAZINE [Suspect]

REACTIONS (15)
  - ASPIRATION BIOPSY [None]
  - COMPLEMENT FACTOR C3 DECREASED [None]
  - DRUG RASH WITH EOSINOPHILIA AND SYSTEMIC SYMPTOMS [None]
  - GRANULOMA [None]
  - HEPATOMEGALY [None]
  - LYMPHADENOPATHY [None]
  - LYMPHOCYTOSIS [None]
  - LYMPHOPROLIFERATIVE DISORDER [None]
  - MOUTH ULCERATION [None]
  - PSEUDOLYMPHOMA [None]
  - PYREXIA [None]
  - RASH MACULO-PAPULAR [None]
  - RASH PRURITIC [None]
  - SWELLING FACE [None]
  - VOMITING [None]
